FAERS Safety Report 10156859 (Version 1)
Quarter: 2014Q2

REPORT INFORMATION
  Report Type: Spontaneous
  Country: US (occurrence: None)
  Receive Date: 20140506
  Receipt Date: 20140506
  Transmission Date: 20141212
  Serious: No
  Sender: FDA-Public Use
  Company Number: None

PATIENT
  Age: 45 Year
  Sex: Male
  Weight: 79.83 kg

DRUGS (4)
  1. CAPSAICIN [Suspect]
     Indication: NECK PAIN
     Dosage: PUT ON SKIN ONCE
  2. CAPSAICIN [Suspect]
     Indication: MUSCULOSKELETAL PAIN
     Dosage: PUT ON SKIN ONCE
  3. ADVIL [Concomitant]
  4. TYLENOL [Concomitant]

REACTIONS (3)
  - Thermal burn [None]
  - Pain [None]
  - Burning sensation [None]
